FAERS Safety Report 5793127-3 (Version None)
Quarter: 2008Q2

REPORT INFORMATION
  Report Type: 
  Country: None (occurrence: None)
  Receive Date: 20080627
  Receipt Date: 20080320
  Transmission Date: 20081010
  Serious: No
  Sender: FDA-Public Use
  Company Number: A0716189A

PATIENT
  Age: 16 Month
  Sex: Male

DRUGS (3)
  1. FLOVENT [Suspect]
     Route: 055
  2. OMEPRAZOLE [Concomitant]
  3. MOMETASONE FUROATE [Concomitant]

REACTIONS (1)
  - DRUG INEFFECTIVE [None]
